FAERS Safety Report 21166613 (Version 1)
Quarter: 2022Q3

REPORT INFORMATION
  Report Type: Spontaneous
  Country: US (occurrence: None)
  Receive Date: 20220803
  Receipt Date: 20220803
  Transmission Date: 20221027
  Serious: No
  Sender: FDA-Public Use
  Company Number: None

PATIENT
  Age: 64 Year
  Sex: Female
  Weight: 90 kg

DRUGS (1)
  1. PAXLOVID [Suspect]
     Active Substance: NIRMATRELVIR\RITONAVIR
     Indication: SARS-CoV-2 test positive
     Dosage: OTHER QUANTITY : 1 DOSE OF 3 TABLETS;?FREQUENCY : TWICE A DAY;?
     Route: 048

REACTIONS (2)
  - Dysgeusia [None]
  - Tremor [None]

NARRATIVE: CASE EVENT DATE: 20220731
